FAERS Safety Report 8838495 (Version 1)
Quarter: 2012Q4

REPORT INFORMATION
  Report Type: 
  Country: BR (occurrence: BR)
  Receive Date: 20121012
  Receipt Date: 20121012
  Transmission Date: 20130627
  Serious: Yes (Other)
  Sender: FDA-Public Use
  Company Number: BR-B.I. PHARMACEUTICALS,INC./RIDGEFIELD-2012-BR-01146BR

PATIENT
  Sex: Male

DRUGS (6)
  1. TRAYENTA [Suspect]
     Indication: DIABETES MELLITUS
     Dosage: 5 mg
     Route: 048
     Dates: start: 201206, end: 201209
  2. METFORMINA [Concomitant]
     Indication: DIABETES MELLITUS
  3. LOSARTANA [Concomitant]
     Indication: HYPERTENSION
  4. SELOZOK [Concomitant]
     Indication: BLOOD PRESSURE INCREASED
  5. OMEPRAZOL [Concomitant]
     Indication: ABDOMINAL DISCOMFORT
  6. SIMVASTATIN [Concomitant]
     Indication: CARDIAC DISORDER

REACTIONS (5)
  - Hepatic cirrhosis [Not Recovered/Not Resolved]
  - Early satiety [Not Recovered/Not Resolved]
  - Weight decreased [Not Recovered/Not Resolved]
  - Abdominal distension [Not Recovered/Not Resolved]
  - Hepatomegaly [Not Recovered/Not Resolved]
